FAERS Safety Report 7458811-4 (Version None)
Quarter: 2011Q2

REPORT INFORMATION
  Report Type: 
  Country: None (occurrence: None)
  Receive Date: 20110504
  Receipt Date: 20110420
  Transmission Date: 20111010
  Serious: Yes (Hospitalization)
  Sender: FDA-Public Use
  Company Number: JP-JNJFOC-20101104664

PATIENT
  Age: 73 Year
  Sex: Female
  Weight: 47 kg

DRUGS (20)
  1. REMICADE [Suspect]
     Route: 042
  2. REMICADE [Suspect]
     Route: 042
  3. PREDONINE [Concomitant]
     Indication: CROHN'S DISEASE
     Route: 048
  4. REMICADE [Suspect]
     Route: 042
  5. STEROIDS NOS [Concomitant]
     Indication: PROPHYLAXIS
     Dosage: ADMINISTERED ON ALL INFUSION DATES THROUGH 27-MAY-2010
  6. REMICADE [Suspect]
     Route: 042
  7. PENTASA [Concomitant]
     Indication: CROHN'S DISEASE
     Route: 048
  8. ANTIHISTAMINES [Concomitant]
     Indication: PROPHYLAXIS
     Dosage: ADMINISTERED ON ALL INFUSION DATES THROUGH 27-MAY-2010
  9. REMICADE [Suspect]
     Route: 042
  10. REMICADE [Suspect]
     Route: 042
  11. FERROUS CITRATE [Concomitant]
     Indication: IRON DEFICIENCY ANAEMIA
  12. FERRICON [Concomitant]
     Indication: IRON DEFICIENCY ANAEMIA
  13. PARIET [Concomitant]
     Indication: PROPHYLAXIS
     Route: 048
  14. REMICADE [Suspect]
     Indication: CROHN'S DISEASE
     Route: 042
  15. REMICADE [Suspect]
     Route: 042
  16. ACETAMINOPHEN [Concomitant]
     Indication: PROPHYLAXIS
     Dosage: ADMINISTERED ON ALL INFUSION DATES THROUGH 27-MAY-2010
  17. BONALON [Concomitant]
     Indication: OSTEONECROSIS
     Route: 048
  18. ASPIRIN [Concomitant]
     Indication: TEMPORAL ARTERITIS
     Route: 048
  19. CELECOX [Concomitant]
     Indication: TEMPORAL ARTERITIS
     Route: 048
  20. LAXOBERON [Concomitant]
     Indication: PROPHYLAXIS
     Route: 048

REACTIONS (2)
  - PERITONEAL NEOPLASM [None]
  - PERITONEAL ABSCESS [None]
